FAERS Safety Report 7805246-8 (Version None)
Quarter: 2011Q4

REPORT INFORMATION
  Report Type: 
  Country: None (occurrence: None)
  Receive Date: 20111010
  Receipt Date: 20110926
  Transmission Date: 20120403
  Serious: Yes (Hospitalization, Other)
  Sender: FDA-Public Use
  Company Number: CA-ELI_LILLY_AND_COMPANY-CA201109007137

PATIENT
  Sex: Female

DRUGS (7)
  1. MICARDIS [Concomitant]
     Dosage: 80 MG, QD
  2. MAGNESIUM [Concomitant]
     Dosage: 1000 MG, EACH EVENING
  3. CYMBALTA [Suspect]
     Indication: DEPRESSION
     Dosage: 60 MG, QOD
     Dates: start: 20110901, end: 20110924
  4. HYDROCHLOROTHIAZIDE [Concomitant]
     Dosage: 25 MG, QD
  5. PANTOPRAZOLE [Concomitant]
     Dosage: 40 MG, QD
  6. CLONAZEPAM [Concomitant]
     Indication: DEPRESSION
     Dosage: 1 MG, BID
     Dates: start: 20110915
  7. THYROID THERAPY [Concomitant]
     Dosage: 30 MG, QD

REACTIONS (8)
  - ABDOMINAL PAIN UPPER [None]
  - DEPRESSION [None]
  - DYSPHAGIA [None]
  - FATIGUE [None]
  - OESOPHAGEAL SPASM [None]
  - PARAESTHESIA ORAL [None]
  - PARANOIA [None]
  - DIARRHOEA [None]
